FAERS Safety Report 20022620 (Version 1)
Quarter: 2021Q4

REPORT INFORMATION
  Report Type: Spontaneous
  Country: DK (occurrence: DK)
  Receive Date: 20211102
  Receipt Date: 20211102
  Transmission Date: 20220303
  Serious: Yes (Congenital Anomaly, Other)
  Sender: FDA-Public Use
  Company Number: DK-DKMA-ADR 25577216

PATIENT
  Sex: Female

DRUGS (3)
  1. ONDANSETRON [Suspect]
     Active Substance: ONDANSETRON
     Indication: Hyperemesis gravidarum
     Dosage: 8 MILLIGRAM, ONCE A DAY (STRENGTH: 4 MG)
     Route: 064
     Dates: start: 20181118, end: 20190314
  2. DICLOXACILLIN SODIUM [Concomitant]
     Active Substance: DICLOXACILLIN SODIUM
     Indication: Infection
     Dosage: UNK (DOSAGE: TAKEN FOR A SHORT PERIOD OF TIME)
     Route: 064
     Dates: start: 20181116, end: 201811
  3. CYCLIZINE HYDROCHLORIDE [Concomitant]
     Active Substance: CYCLIZINE HYDROCHLORIDE
     Indication: Product used for unknown indication
     Dosage: UNK (DOSAGE: TAKEN FOR A SHORT PERIOD OF TIME)
     Route: 064
     Dates: start: 20181116, end: 201811

REACTIONS (2)
  - Cleft lip and palate [Not Recovered/Not Resolved]
  - Foetal exposure during pregnancy [Recovered/Resolved]

NARRATIVE: CASE EVENT DATE: 20181118
